FAERS Safety Report 15014673 (Version 1)
Quarter: 2018Q2

REPORT INFORMATION
  Report Type: Spontaneous
  Country: GB (occurrence: GB)
  Receive Date: 20180615
  Receipt Date: 20180615
  Transmission Date: 20180711
  Serious: Yes (Other)
  Sender: FDA-Public Use
  Company Number: GB-ACCORD-068293

PATIENT
  Age: 72 Year
  Sex: Female
  Weight: 49 kg

DRUGS (5)
  1. WARFARIN [Concomitant]
     Active Substance: WARFARIN
  2. SYMBICORT [Concomitant]
     Active Substance: BUDESONIDE\FORMOTEROL FUMARATE DIHYDRATE
  3. LACIDIPINE [Concomitant]
     Active Substance: LACIDIPINE
  4. RAMIPRIL. [Suspect]
     Active Substance: RAMIPRIL
     Indication: ESSENTIAL HYPERTENSION
     Route: 048
     Dates: start: 20170222
  5. EZETIMIBE. [Concomitant]
     Active Substance: EZETIMIBE

REACTIONS (1)
  - Raynaud^s phenomenon [Recovering/Resolving]

NARRATIVE: CASE EVENT DATE: 20170301
